FAERS Safety Report 20257445 (Version 1)
Quarter: 2021Q4

REPORT INFORMATION
  Report Type: Spontaneous
  Country: JP (occurrence: JP)
  Receive Date: 20211230
  Receipt Date: 20211230
  Transmission Date: 20220304
  Serious: Yes (Death, Other)
  Sender: FDA-Public Use
  Company Number: JP-ALLERGAN-2144372US

PATIENT
  Sex: Male

DRUGS (8)
  1. ASENAPINE MALEATE [Suspect]
     Active Substance: ASENAPINE MALEATE
     Indication: Schizophrenia
     Dosage: 15 MG, QD
     Dates: start: 2021
  2. ASENAPINE MALEATE [Suspect]
     Active Substance: ASENAPINE MALEATE
     Dosage: 10 MG, QD
     Route: 060
     Dates: start: 202111
  3. RISPERIDONE [Suspect]
     Active Substance: RISPERIDONE
     Indication: Product used for unknown indication
     Dosage: UNK
     Route: 048
  4. ARIPIPRAZOLE [Concomitant]
     Active Substance: ARIPIPRAZOLE
  5. LURASIDONE HYDROCHLORIDE [Concomitant]
     Active Substance: LURASIDONE HYDROCHLORIDE
  6. LEVOMEPROMAZINE [Concomitant]
     Active Substance: LEVOMEPROMAZINE
  7. BLONANSERIN [Concomitant]
     Active Substance: BLONANSERIN
  8. BREXPIPRAZOLE [Concomitant]
     Active Substance: BREXPIPRAZOLE

REACTIONS (3)
  - Death [Fatal]
  - Neuroleptic malignant syndrome [Unknown]
  - Pyrexia [Unknown]
